FAERS Safety Report 25263160 (Version 1)
Quarter: 2025Q2

REPORT INFORMATION
  Report Type: Spontaneous
  Country: US (occurrence: US)
  Receive Date: 20250502
  Receipt Date: 20250502
  Transmission Date: 20250717
  Serious: No
  Sender: ABBVIE
  Company Number: US-ABBVIE-6250571

PATIENT
  Sex: Female

DRUGS (1)
  1. QULIPTA [Suspect]
     Active Substance: ATOGEPANT
     Indication: Migraine
     Dosage: START DATE: UNKNOWN
     Route: 048

REACTIONS (4)
  - Vomiting [Unknown]
  - Tremor [Unknown]
  - Vision blurred [Unknown]
  - Pain of skin [Unknown]
